FAERS Safety Report 21307197 (Version 1)
Quarter: 2022Q3

REPORT INFORMATION
  Report Type: Spontaneous
  Country: US (occurrence: None)
  Receive Date: 20220907
  Receipt Date: 20220907
  Transmission Date: 20221026
  Serious: Yes (Hospitalization)
  Sender: FDA-Public Use
  Company Number: None

PATIENT
  Age: 51 Year
  Sex: Male

DRUGS (1)
  1. CAPECITABINE [Suspect]
     Active Substance: CAPECITABINE
     Dosage: FREQUENCY : TWICE A DAY;?
     Route: 048
     Dates: start: 202208

REACTIONS (5)
  - Jugular vein thrombosis [None]
  - Arthropod sting [None]
  - Hypersensitivity [None]
  - Nausea [None]
  - Off label use [None]

NARRATIVE: CASE EVENT DATE: 20220907
